FAERS Safety Report 11665844 (Version 2)
Quarter: 2015Q4

REPORT INFORMATION
  Report Type: Report from Study
  Country: US (occurrence: US)
  Receive Date: 20151027
  Receipt Date: 20151113
  Transmission Date: 20160304
  Serious: Yes (Hospitalization, Other)
  Sender: FDA-Public Use
  Company Number: US-BAYER-2015-392672

PATIENT
  Age: 74 Year
  Sex: Male

DRUGS (21)
  1. REPAGLINIDE. [Concomitant]
     Active Substance: REPAGLINIDE
  2. SINEMET [Concomitant]
     Active Substance: CARBIDOPA\LEVODOPA
  3. REGLAN [Concomitant]
     Active Substance: METOCLOPRAMIDE HYDROCHLORIDE
  4. DULOXETINE HYDROCHLORIDE. [Concomitant]
     Active Substance: DULOXETINE HYDROCHLORIDE
  5. NEXAVAR [Suspect]
     Active Substance: SORAFENIB
     Indication: HEPATIC CANCER
     Dosage: 400 MG, BID
     Route: 048
     Dates: start: 2015, end: 2015
  6. AMLODIPINE BESYLATE. [Concomitant]
     Active Substance: AMLODIPINE BESYLATE
  7. LANTUS [Concomitant]
     Active Substance: INSULIN GLARGINE
  8. METOPROLOL TARTRATE. [Concomitant]
     Active Substance: METOPROLOL TARTRATE
  9. ZOCOR [Concomitant]
     Active Substance: SIMVASTATIN
  10. LOSARTAN POTASSIUM. [Concomitant]
     Active Substance: LOSARTAN POTASSIUM
  11. CARBIDOPA. [Concomitant]
     Active Substance: CARBIDOPA
  12. TEMAZEPAM. [Concomitant]
     Active Substance: TEMAZEPAM
  13. PROTONIX [Concomitant]
     Active Substance: PANTOPRAZOLE SODIUM
  14. NEXAVAR [Suspect]
     Active Substance: SORAFENIB
     Indication: HEPATIC CANCER
     Dosage: 200 MG, QD
     Route: 048
     Dates: start: 20150720, end: 2015
  15. LEVODOPA [Concomitant]
     Active Substance: LEVODOPA
  16. SIMVASTATIN. [Concomitant]
     Active Substance: SIMVASTATIN
  17. CYMBALTA [Concomitant]
     Active Substance: DULOXETINE HYDROCHLORIDE
  18. PERCOCET [Concomitant]
     Active Substance: ACETAMINOPHEN\OXYCODONE HYDROCHLORIDE
  19. PANTOPRAZOLE SODIUM. [Concomitant]
     Active Substance: PANTOPRAZOLE SODIUM
  20. TRAMADOL HYDROCHLORIDE. [Concomitant]
     Active Substance: TRAMADOL HYDROCHLORIDE
  21. RESTORIL [Concomitant]
     Active Substance: TEMAZEPAM

REACTIONS (16)
  - Ammonia increased [None]
  - Ascites [None]
  - Pyrexia [None]
  - Asthenia [None]
  - Hepatic lesion [None]
  - Hepatic encephalopathy [Recovering/Resolving]
  - Decreased appetite [Not Recovered/Not Resolved]
  - Splenomegaly [None]
  - Tremor [None]
  - Mental status changes [None]
  - Movement disorder [None]
  - Lethargy [None]
  - Dysuria [None]
  - Dysarthria [None]
  - Confusional state [None]
  - Fatigue [Not Recovered/Not Resolved]

NARRATIVE: CASE EVENT DATE: 20151101
